FAERS Safety Report 14668594 (Version 1)
Quarter: 2018Q1

REPORT INFORMATION
  Report Type: Spontaneous
  Country: IT (occurrence: IT)
  Receive Date: 20180322
  Receipt Date: 20180322
  Transmission Date: 20180509
  Serious: No
  Sender: FDA-Public Use
  Company Number: IT-ADIENNEP-2017AD000145

PATIENT
  Age: 11 Year
  Sex: Male
  Weight: 35 kg

DRUGS (21)
  1. VORICONAZOLE. [Concomitant]
     Active Substance: VORICONAZOLE
     Dosage: 620 MG
     Dates: start: 20160421, end: 20160512
  2. TRIMETON [Concomitant]
     Active Substance: CHLORPHENIRAMINE MALEATE
     Dosage: 14 MG
     Dates: start: 20160425, end: 20160428
  3. FLUDARABINE [Suspect]
     Active Substance: FLUDARABINE PHOSPHATE
     Indication: ALLOGENIC BONE MARROW TRANSPLANTATION THERAPY
     Dosage: 59 MG DAILY
     Route: 042
     Dates: start: 20160424, end: 20160426
  4. LASIX [Concomitant]
     Active Substance: FUROSEMIDE
     Dosage: 68 MG
     Dates: start: 20160421, end: 20160609
  5. DIAMINOCILLINA [Concomitant]
     Active Substance: PENICILLIN G BENZATHINE
     Dosage: 1200000 LU
     Dates: start: 20160421, end: 20160421
  6. MYCOSTATIN [Concomitant]
     Active Substance: NYSTATIN
     Dosage: 30 ML
     Dates: start: 20160421, end: 20160626
  7. DEURSIL [Concomitant]
     Active Substance: URSODIOL
     Dosage: 300 MG
     Dates: start: 20160421, end: 20160626
  8. CIPROXIN [Concomitant]
     Active Substance: CIPROFLOXACIN
     Dosage: 1000 MG
     Dates: start: 20160421, end: 20160423
  9. BUSILVEX [Suspect]
     Active Substance: BUSULFAN
     Indication: BONE MARROW TRANSPLANT
     Dosage: 111 MG DAILY
     Route: 042
     Dates: start: 20160424, end: 20160426
  10. ACICLOVIR [Concomitant]
     Active Substance: ACYCLOVIR
     Dosage: 1800 MG
     Dates: start: 20160421, end: 20160427
  11. URBASON [Concomitant]
     Active Substance: METHYLPREDNISOLONE
     Dosage: 35 MG
     Dates: start: 20160425, end: 20160603
  12. TEGRETOL [Concomitant]
     Active Substance: CARBAMAZEPINE
     Dosage: 350 MG
     Dates: start: 20160424, end: 20160427
  13. EMEND [Concomitant]
     Active Substance: APREPITANT
     Dates: start: 20160422, end: 20160424
  14. TEPADINA [Suspect]
     Active Substance: THIOTEPA
     Indication: ALLOGENIC BONE MARROW TRANSPLANTATION THERAPY
     Dosage: 173.5 MG DAILY
     Route: 042
     Dates: start: 20160422, end: 20160423
  15. AMIKACIN SULFATE. [Concomitant]
     Active Substance: AMIKACIN SULFATE
     Dosage: 680 MG
     Dates: start: 20160427, end: 20160512
  16. TACHIPIRINA [Concomitant]
     Active Substance: ACETAMINOPHEN
     Dosage: 500 MG
     Dates: start: 20160425, end: 20160427
  17. TAZOCIN [Concomitant]
     Active Substance: PIPERACILLIN SODIUM\TAZOBACTAM SODIUM
     Dosage: 10500 MG
     Dates: start: 20160423, end: 20160524
  18. RANITIDINE. [Concomitant]
     Active Substance: RANITIDINE
     Dosage: 70 MG
     Dates: start: 20160422, end: 20160429
  19. HEPARIN SODIUM. [Concomitant]
     Active Substance: HEPARIN SODIUM
     Dosage: 3500 LU
     Dates: start: 20160421, end: 20160520
  20. ALOXI [Concomitant]
     Active Substance: PALONOSETRON HYDROCHLORIDE
     Dosage: 175 MG
     Dates: start: 20160422, end: 20160425
  21. ANTITHYMOCYTE IMMUNOGLOBULIN [Suspect]
     Active Substance: THYMOCYTE IMMUNE GLOBULIN NOS
     Indication: ALLOGENIC BONE MARROW TRANSPLANTATION THERAPY
     Dosage: 69.4 MG DAILY
     Route: 042
     Dates: start: 20160425, end: 20160427

REACTIONS (3)
  - Vomiting [Recovered/Resolved]
  - Constipation [Recovering/Resolving]
  - Pyrexia [Recovering/Resolving]

NARRATIVE: CASE EVENT DATE: 20160426
